FAERS Safety Report 6739260-0 (Version None)
Quarter: 2010Q2

REPORT INFORMATION
  Report Type: 
  Country: None (occurrence: None)
  Receive Date: 20100525
  Receipt Date: 20100517
  Transmission Date: 20101027
  Serious: Yes (Hospitalization)
  Sender: FDA-Public Use
  Company Number: US-ASTRAZENECA-2010SE22365

PATIENT
  Age: 69 Year
  Sex: Female
  Weight: 68 kg

DRUGS (6)
  1. NEXIUM [Suspect]
     Indication: GASTROOESOPHAGEAL REFLUX DISEASE
     Route: 048
     Dates: start: 20090101
  2. VERAPAMIL [Concomitant]
     Indication: BLOOD PRESSURE
  3. ROPINIROLE [Concomitant]
     Indication: RESTLESS LEGS SYNDROME
  4. SIMVASTATIN [Concomitant]
     Indication: BLOOD CHOLESTEROL
  5. PREAMRIN [Concomitant]
  6. HYDROCHLOROTHIAZIDE [Concomitant]

REACTIONS (1)
  - HIP ARTHROPLASTY [None]
